FAERS Safety Report 6236431-7 (Version None)
Quarter: 2009Q2

REPORT INFORMATION
  Report Type: 
  Country: None (occurrence: None)
  Receive Date: 20090619
  Receipt Date: 20090611
  Transmission Date: 20091009
  Serious: Yes (Other)
  Sender: FDA-Public Use
  Company Number: US-ASTRAZENECA-2009UW02956

PATIENT
  Age: 582 Month
  Sex: Female
  Weight: 83 kg

DRUGS (4)
  1. SEROQUEL [Suspect]
     Indication: BIPOLAR DISORDER
     Dosage: 25 TO 200 MG
     Route: 048
     Dates: start: 20000613, end: 20050518
  2. ABILIFY [Concomitant]
  3. CLOZARIL [Concomitant]
  4. GEODON [Concomitant]

REACTIONS (5)
  - CARDIAC DISORDER [None]
  - MENTAL DISORDER [None]
  - OVARIAN ATROPHY [None]
  - PANCREATITIS [None]
  - POOR PERIPHERAL CIRCULATION [None]
